FAERS Safety Report 8831977 (Version 1)
Quarter: 2012Q4

REPORT INFORMATION
  Report Type: 
  Country: US (occurrence: US)
  Receive Date: 20121009
  Receipt Date: 20121009
  Transmission Date: 20130627
  Serious: Yes (Life-Threatening, Disabling)
  Sender: FDA-Public Use
  Company Number: US-ROCHE-1141621

PATIENT
  Sex: Female
  Weight: 46.76 kg

DRUGS (4)
  1. RITUXAN [Suspect]
     Indication: CHRONIC LYMPHOCYTIC LEUKAEMIA
     Route: 042
     Dates: start: 20000412, end: 20011109
  2. MISOPROSTOL [Concomitant]
  3. ESTRONE [Concomitant]
  4. SALSALATE [Concomitant]

REACTIONS (5)
  - Herpes zoster [Unknown]
  - Post herpetic neuralgia [Unknown]
  - Chronic obstructive pulmonary disease [Not Recovered/Not Resolved]
  - Lymphadenopathy [Unknown]
  - Thrombocytopenia [Unknown]
